FAERS Safety Report 7729642-2 (Version None)
Quarter: 2011Q3

REPORT INFORMATION
  Report Type: 
  Country: None (occurrence: None)
  Receive Date: 20110831
  Receipt Date: 20110817
  Transmission Date: 20111222
  Serious: Yes (Death)
  Sender: FDA-Public Use
  Company Number: 100023111

PATIENT
  Age: 61 Year
  Sex: Male
  Weight: 101 kg

DRUGS (3)
  1. CLOZARIL [Suspect]
     Indication: SCHIZOPHRENIA
     Dosage: 450 MG (450 MG, 1 IN 1 D), ORAL
     Route: 048
     Dates: start: 19930408, end: 20110717
  2. ESCITALOPRAM OXALATE [Suspect]
     Indication: DEPRESSION
     Dosage: 20 MG (20 MG, 1 IN 1 D), ORAL
     Route: 048
     Dates: end: 20110717
  3. SULPIRIDE (SULPIRIDE) [Suspect]
     Indication: SCHIZOPHRENIA
     Dosage: 600 MG (600 MG, 1 IN 1 D), ORAL
     Route: 048
     Dates: end: 20110717

REACTIONS (4)
  - NEOPLASM PROGRESSION [None]
  - LUNG ADENOCARCINOMA METASTATIC [None]
  - RESPIRATORY FAILURE [None]
  - ORGAN FAILURE [None]
